FAERS Safety Report 5286416-2 (Version None)
Quarter: 2007Q2

REPORT INFORMATION
  Report Type: 
  Country: None (occurrence: None)
  Receive Date: 20070404
  Receipt Date: 20070323
  Transmission Date: 20071010
  Serious: Yes (Life-Threatening, Hospitalization)
  Sender: FDA-Public Use
  Company Number: US-ROCHE-463537

PATIENT
  Age: 53 Year
  Sex: Female
  Weight: 63.5 kg

DRUGS (15)
  1. PEGASYS [Suspect]
     Indication: HEPATITIS C
     Dosage: FREQUENCY WAS REPORTED AS WEEKLY. STRENGTH WAS REPORTED AS 180MCG/0.5CC.
     Route: 058
     Dates: start: 20060626
  2. PEGASYS [Suspect]
     Route: 058
     Dates: start: 20061225
  3. PEGASYS [Suspect]
     Dosage: 32ND WEEK OF TREATMENT.
     Route: 058
     Dates: start: 20070129, end: 20070207
  4. PEGASYS [Suspect]
     Route: 058
     Dates: start: 20070221
  5. RIBAVIRIN [Suspect]
     Indication: DRUG USE FOR UNKNOWN INDICATION
     Route: 065
     Dates: start: 20070315
  6. RIBASPHERE [Suspect]
     Indication: HEPATITIS C
     Route: 048
     Dates: start: 20060626, end: 20060906
  7. RIBASPHERE [Suspect]
     Route: 048
     Dates: start: 20060906, end: 20060911
  8. RIBASPHERE [Suspect]
     Route: 048
     Dates: start: 20061004, end: 20061018
  9. RIBASPHERE [Suspect]
     Route: 048
     Dates: start: 20061019
  10. RIBASPHERE [Suspect]
     Route: 048
     Dates: start: 20070221
  11. PROZAC [Concomitant]
     Indication: DEPRESSION
     Route: 048
  12. MIRTAZAPINE [Concomitant]
     Route: 048
  13. QUETIAPINE FUMARATE [Concomitant]
     Dosage: 50 MG THREE TIMES DAILY AND 300 MG AT BEDTIME.
     Route: 048
  14. RITALIN [Concomitant]
     Indication: DEPRESSION
     Dosage: INDICATION REPORTED AS DEPRESSION/SUICIDAL IDEATION.
     Route: 048
  15. SYNTHROID [Concomitant]

REACTIONS (16)
  - ANOREXIA [None]
  - ASTHENIA [None]
  - BLOOD GLUCOSE INCREASED [None]
  - CONSTIPATION [None]
  - COUGH [None]
  - DRY MOUTH [None]
  - DRY SKIN [None]
  - FATIGUE [None]
  - HAEMOLYTIC ANAEMIA [None]
  - ILL-DEFINED DISORDER [None]
  - MAJOR DEPRESSION [None]
  - PLATELET COUNT INCREASED [None]
  - PYREXIA [None]
  - SIALOADENITIS [None]
  - SUICIDAL IDEATION [None]
  - THYROID FUNCTION TEST ABNORMAL [None]
